FAERS Safety Report 5355113-7 (Version None)
Quarter: 2007Q2

REPORT INFORMATION
  Report Type: 
  Country: None (occurrence: None)
  Receive Date: 20070613
  Receipt Date: 20070606
  Transmission Date: 20071010
  Serious: Yes (Other)
  Sender: FDA-Public Use
  Company Number: PHEH2007US06378

PATIENT
  Age: 81 Year
  Sex: Female
  Weight: 107.48 kg

DRUGS (6)
  1. ZELNORM [Suspect]
     Indication: IRRITABLE BOWEL SYNDROME
     Dosage: 6 MG, BID
     Route: 048
     Dates: end: 20070425
  2. LASIX [Concomitant]
     Dosage: 20 MG, QD
     Route: 048
  3. TOPROL-XL [Concomitant]
     Dosage: 50 MG, QD
     Route: 048
  4. PROTONIX [Concomitant]
     Dosage: 40 MG, QD
     Route: 048
  5. PLAVIX [Concomitant]
     Dosage: 75 MBQ, QD
     Route: 048
  6. HUMULIN R [Concomitant]

REACTIONS (3)
  - ABDOMINAL PAIN UPPER [None]
  - CHEST PAIN [None]
  - STENT PLACEMENT [None]
